FAERS Safety Report 8198559-4 (Version None)
Quarter: 2012Q1

REPORT INFORMATION
  Report Type: 
  Country: None (occurrence: None)
  Receive Date: 20120309
  Receipt Date: 20111229
  Transmission Date: 20120608
  Serious: No
  Sender: FDA-Public Use
  Company Number: US-AMGEN-USASP2011069423

PATIENT
  Sex: Female

DRUGS (1)
  1. PROLIA [Suspect]
     Indication: PRODUCT USED FOR UNKNOWN INDICATION
     Dosage: 60 MG, Q6MO
     Route: 058

REACTIONS (6)
  - PAIN IN EXTREMITY [None]
  - THROAT TIGHTNESS [None]
  - OEDEMA PERIPHERAL [None]
  - DRY THROAT [None]
  - ERYTHEMA [None]
  - DYSGEUSIA [None]
